FAERS Safety Report 9192832 (Version 2)
Quarter: 2013Q2

REPORT INFORMATION
  Report Type: Report from Study
  Country: DE (occurrence: DE)
  Receive Date: 20130327
  Receipt Date: 20130403
  Transmission Date: 20140414
  Serious: Yes (Hospitalization)
  Sender: FDA-Public Use
  Company Number: DE-SANOFI-AVENTIS-2013SA030045

PATIENT
  Age: 68 Year
  Sex: Male
  Weight: 80 kg

DRUGS (8)
  1. CABAZITAXEL [Suspect]
     Indication: PROSTATE CANCER METASTATIC
     Route: 042
     Dates: start: 20130311, end: 20130311
  2. PREDNISOLONE [Suspect]
     Indication: PROSTATE CANCER METASTATIC
     Route: 048
     Dates: start: 20130311, end: 20130316
  3. BELOC ZOK [Concomitant]
     Route: 048
     Dates: start: 1998
  4. PREDNISOLON [Concomitant]
     Indication: PROPHYLAXIS
     Route: 048
     Dates: start: 20120829, end: 20130310
  5. PREDNISOLON [Concomitant]
     Indication: PROPHYLAXIS
     Route: 048
     Dates: start: 20130311
  6. ADALAT [Concomitant]
     Route: 048
     Dates: start: 20130311, end: 20130311
  7. XGEVA [Concomitant]
     Dates: start: 20111012
  8. TRENANTONE [Concomitant]
     Dates: start: 20100915

REACTIONS (2)
  - Syncope [Recovered/Resolved]
  - Blood pressure increased [Recovered/Resolved]
